FAERS Safety Report 25340360 (Version 1)
Quarter: 2025Q2

REPORT INFORMATION
  Report Type: Spontaneous
  Country: US (occurrence: US)
  Receive Date: 20250521
  Receipt Date: 20250521
  Transmission Date: 20250716
  Serious: Yes (Other)
  Sender: AZURITY PHARMACEUTICALS
  Company Number: US-AZURITY PHARMACEUTICALS, INC.-AZR202503-000973

PATIENT
  Age: 75 Year
  Sex: Male

DRUGS (2)
  1. DANZITEN [Suspect]
     Active Substance: NILOTINIB
     Indication: Chronic myeloid leukaemia
     Route: 065
     Dates: start: 202502, end: 20250326
  2. DANZITEN [Suspect]
     Active Substance: NILOTINIB
     Indication: B precursor type acute leukaemia

REACTIONS (2)
  - Hypotension [Unknown]
  - Therapy cessation [Unknown]

NARRATIVE: CASE EVENT DATE: 20250301
